FAERS Safety Report 7268314-8 (Version None)
Quarter: 2011Q1

REPORT INFORMATION
  Report Type: 
  Country: None (occurrence: None)
  Receive Date: 20110201
  Receipt Date: 20110119
  Transmission Date: 20110831
  Serious: Yes (Other)
  Sender: FDA-Public Use
  Company Number: IN-WATSON-2011-00775

PATIENT
  Age: 36 Year
  Sex: Male

DRUGS (1)
  1. TRIAMCINOLONE DIACETATE [Suspect]
     Indication: PLANTAR FASCIITIS
     Dosage: 0.1 ML, SINGLE
     Route: 065

REACTIONS (2)
  - CHORIORETINOPATHY [None]
  - VISUAL ACUITY REDUCED [None]
